FAERS Safety Report 13042424 (Version 1)
Quarter: 2016Q4

REPORT INFORMATION
  Report Type: Spontaneous
  Country: DK (occurrence: DK)
  Receive Date: 20161219
  Receipt Date: 20161219
  Transmission Date: 20170207
  Serious: Yes (Hospitalization, Other)
  Sender: FDA-Public Use
  Company Number: DK-ELI_LILLY_AND_COMPANY-DK201611011360

PATIENT
  Age: 42 Year
  Sex: Female

DRUGS (35)
  1. CYMBALTA [Suspect]
     Active Substance: DULOXETINE HYDROCHLORIDE
     Indication: DEPRESSION
     Dosage: UNK, UNKNOWN
     Route: 048
     Dates: end: 20110113
  2. LITHIUM                            /00033702/ [Suspect]
     Active Substance: LITHIUM CARBONATE
     Dosage: 1 DF, QD
     Route: 065
     Dates: start: 20140408
  3. CYMBALTA [Suspect]
     Active Substance: DULOXETINE HYDROCHLORIDE
     Dosage: 90 MG, QD
     Route: 048
  4. EFFEXOR [Interacting]
     Active Substance: VENLAFAXINE HYDROCHLORIDE
     Indication: ANXIETY
     Dosage: 300 MG, QD
     Route: 065
  5. QUETIAPINE. [Suspect]
     Active Substance: QUETIAPINE
     Indication: BIPOLAR DISORDER
     Dosage: UNK, UNKNOWN
     Route: 065
     Dates: end: 20140709
  6. LAMICTAL [Interacting]
     Active Substance: LAMOTRIGINE
     Dosage: 50 MG, WEEKLY (1/W)
     Route: 065
  7. STRATTERA [Suspect]
     Active Substance: ATOMOXETINE HYDROCHLORIDE
     Indication: ATTENTION DEFICIT/HYPERACTIVITY DISORDER
     Dosage: UNK, UNKNOWN
     Route: 065
  8. SEROQUEL [Suspect]
     Active Substance: QUETIAPINE FUMARATE
     Indication: DEPRESSION
     Dosage: UNK, UNKNOWN
     Route: 065
  9. RITALIN [Suspect]
     Active Substance: METHYLPHENIDATE HYDROCHLORIDE
     Dosage: 40 MG, QD
     Route: 065
  10. ABILIFY [Concomitant]
     Active Substance: ARIPIPRAZOLE
     Indication: PRODUCT USED FOR UNKNOWN INDICATION
     Dosage: 5 MG, QD
     Route: 065
  11. EFFEXOR [Interacting]
     Active Substance: VENLAFAXINE HYDROCHLORIDE
     Dosage: 225 MG, QD
     Route: 065
  12. LITHIUM                            /00033702/ [Suspect]
     Active Substance: LITHIUM CARBONATE
     Dosage: 3 DF, QD
     Route: 065
     Dates: end: 20140331
  13. LITHIUM                            /00033702/ [Suspect]
     Active Substance: LITHIUM CARBONATE
     Dosage: 2.5 DF, QD
     Route: 065
     Dates: start: 20140505, end: 201405
  14. PANTOLOC                           /01263204/ [Concomitant]
     Active Substance: PANTOPRAZOLE SODIUM
     Indication: PRODUCT USED FOR UNKNOWN INDICATION
     Dosage: UNK, UNKNOWN
     Route: 065
  15. COMBAR [Concomitant]
     Indication: PRODUCT USED FOR UNKNOWN INDICATION
     Dosage: UNK, UNKNOWN
     Route: 065
  16. CYMBALTA [Suspect]
     Active Substance: DULOXETINE HYDROCHLORIDE
     Dosage: 60 MG, QD
     Route: 048
  17. RITALIN [Suspect]
     Active Substance: METHYLPHENIDATE HYDROCHLORIDE
     Dosage: 10 MG, THREE OR FOUR TIMES A DAY
     Route: 065
  18. RITALIN [Suspect]
     Active Substance: METHYLPHENIDATE HYDROCHLORIDE
     Dosage: UNK, BID
     Route: 065
  19. LAMICTAL [Interacting]
     Active Substance: LAMOTRIGINE
     Indication: DEPRESSION
     Dosage: UNK, UNKNOWN
     Route: 065
     Dates: start: 201408
  20. LAMICTAL [Interacting]
     Active Substance: LAMOTRIGINE
     Dosage: 150 MG, UNKNOWN
     Route: 065
  21. CYMBALTA [Suspect]
     Active Substance: DULOXETINE HYDROCHLORIDE
     Dosage: 120 MG, QD
     Route: 048
  22. SEROQUEL [Suspect]
     Active Substance: QUETIAPINE FUMARATE
     Indication: ANXIETY
     Dosage: 50 MG, QD
     Route: 065
  23. EFFEXOR [Interacting]
     Active Substance: VENLAFAXINE HYDROCHLORIDE
     Indication: DEPRESSION
     Dosage: 225 MG, UNKNOWN
     Route: 065
  24. EFFEXOR [Interacting]
     Active Substance: VENLAFAXINE HYDROCHLORIDE
     Dosage: 375 MG, UNKNOWN
     Route: 065
  25. EFFEXOR [Interacting]
     Active Substance: VENLAFAXINE HYDROCHLORIDE
     Dosage: 300 MG, UNKNOWN
     Route: 065
  26. LITHIUM /00033702/ [Suspect]
     Active Substance: LITHIUM CARBONATE
     Indication: BIPOLAR DISORDER
     Dosage: 2 DF, QD
     Route: 065
     Dates: start: 20140512
  27. ALOPAM [Concomitant]
     Active Substance: OXAZEPAM
     Indication: DEPRESSION
     Dosage: 15 MG, UNKNOWN
     Route: 065
  28. ALOPAM [Concomitant]
     Active Substance: OXAZEPAM
     Indication: ANXIETY
  29. CIPRAMIL                           /00582602/ [Concomitant]
     Active Substance: CITALOPRAM HYDROBROMIDE
     Indication: DEPRESSION
     Dosage: UNK, UNKNOWN
     Route: 065
  30. ALPRAZOLAM. [Concomitant]
     Active Substance: ALPRAZOLAM
     Indication: PRODUCT USED FOR UNKNOWN INDICATION
     Dosage: UNK, 2/W
     Route: 065
  31. RITALIN [Suspect]
     Active Substance: METHYLPHENIDATE HYDROCHLORIDE
     Indication: ATTENTION DEFICIT/HYPERACTIVITY DISORDER
     Dosage: 10 MG, QD
     Route: 065
  32. LITHIUM                            /00033702/ [Suspect]
     Active Substance: LITHIUM CARBONATE
     Dosage: 2 DF, QD
     Route: 065
     Dates: start: 201404
  33. LAMICTAL [Interacting]
     Active Substance: LAMOTRIGINE
     Dosage: 200 MG, UNKNOWN
     Route: 065
     Dates: start: 20140910
  34. CITALOPRAM [Concomitant]
     Active Substance: CITALOPRAM HYDROBROMIDE
     Indication: DEPRESSIVE SYMPTOM
     Dosage: 20 MG, QD
     Route: 065
  35. IMOZOP [Concomitant]
     Active Substance: ZOPICLONE
     Indication: PRODUCT USED FOR UNKNOWN INDICATION
     Dosage: UNK, UNKNOWN
     Route: 065

REACTIONS (39)
  - Depression [Unknown]
  - Suicidal ideation [Unknown]
  - Hypervigilance [Unknown]
  - Crying [Unknown]
  - Drug dependence [Unknown]
  - Gait disturbance [Unknown]
  - Weight increased [Recovering/Resolving]
  - Suicide attempt [Unknown]
  - Memory impairment [Unknown]
  - Toxicity to various agents [Unknown]
  - Drug interaction [Unknown]
  - Somnolence [Unknown]
  - Bipolar disorder [Unknown]
  - Cognitive disorder [Unknown]
  - Drug intolerance [Unknown]
  - Irritability [Unknown]
  - Decreased appetite [Unknown]
  - Borderline personality disorder [Unknown]
  - Helplessness [Unknown]
  - Feeling abnormal [Unknown]
  - Disturbance in attention [Unknown]
  - Stress [Unknown]
  - Condition aggravated [Unknown]
  - Alcoholism [Unknown]
  - Mood swings [Recovered/Resolved]
  - Feeling abnormal [Recovered/Resolved]
  - Fatigue [Unknown]
  - Abdominal pain [Unknown]
  - Affect lability [Unknown]
  - Restlessness [Unknown]
  - Abdominal pain upper [Recovered/Resolved]
  - Dry mouth [Unknown]
  - Anxiety [Recovered/Resolved]
  - Impulsive behaviour [Unknown]
  - Pollakiuria [Unknown]
  - Insomnia [Unknown]
  - Lethargy [Unknown]
  - Nausea [Unknown]
  - Dizziness [Unknown]

NARRATIVE: CASE EVENT DATE: 2010
